FAERS Safety Report 5516892-9 (Version None)
Quarter: 2007Q4

REPORT INFORMATION
  Report Type: 
  Country: None (occurrence: None)
  Receive Date: 20071114
  Receipt Date: 20071109
  Transmission Date: 20080405
  Serious: Yes (Hospitalization)
  Sender: FDA-Public Use
  Company Number: FR-ASTRAZENECA-2007CG01354

PATIENT

DRUGS (2)
  1. INEXIUM [Suspect]
     Route: 048
  2. ANTIFUNGALS [Suspect]
     Indication: SYSTEMIC CANDIDA

REACTIONS (1)
  - NERVOUS SYSTEM DISORDER [None]
